FAERS Safety Report 7733668-2 (Version None)
Quarter: 2011Q3

REPORT INFORMATION
  Report Type: 
  Country: None (occurrence: None)
  Receive Date: 20110907
  Receipt Date: 20110830
  Transmission Date: 20111222
  Serious: Yes (Other)
  Sender: FDA-Public Use
  Company Number: ZA-JNJFOC-20110813425

PATIENT
  Sex: Male
  Weight: 16 kg

DRUGS (1)
  1. NICOTINE [Suspect]
     Indication: ACCIDENTAL DRUG INTAKE BY CHILD
     Route: 048
     Dates: start: 20110830, end: 20110830

REACTIONS (2)
  - ACCIDENTAL DRUG INTAKE BY CHILD [None]
  - WRONG DRUG ADMINISTERED [None]
